FAERS Safety Report 19712034 (Version 3)
Quarter: 2022Q3

REPORT INFORMATION
  Report Type: Report from Study
  Country: US (occurrence: US)
  Receive Date: 20210816
  Receipt Date: 20220810
  Transmission Date: 20221027
  Serious: Yes (Death, Hospitalization, Other)
  Sender: FDA-Public Use
  Company Number: US-BRISTOL-MYERS SQUIBB COMPANY-BMS-2021-079182

PATIENT
  Age: 77 Year
  Sex: Female
  Weight: 71.7 kg

DRUGS (2)
  1. IPILIMUMAB [Suspect]
     Active Substance: IPILIMUMAB
     Indication: Malignant melanoma
     Route: 042
     Dates: start: 20210430, end: 20210701
  2. NIVOLUMAB [Suspect]
     Active Substance: NIVOLUMAB
     Indication: Malignant melanoma
     Route: 042
     Dates: start: 20210430, end: 20210701

REACTIONS (5)
  - Muscular weakness [Not Recovered/Not Resolved]
  - Hyponatraemia [Unknown]
  - Peripheral motor neuropathy [Not Recovered/Not Resolved]
  - Urinary tract infection [Unknown]
  - Sepsis [Fatal]

NARRATIVE: CASE EVENT DATE: 20210730
